FAERS Safety Report 4431789-3 (Version None)
Quarter: 2004Q3

REPORT INFORMATION
  Report Type: 
  Country: None (occurrence: None)
  Receive Date: 20040819
  Receipt Date: 20040806
  Transmission Date: 20050211
  Serious: Yes (Disabling)
  Sender: FDA-Public Use
  Company Number: HQWYE439114JUN04

PATIENT
  Age: 1 Day
  Sex: Male

DRUGS (4)
  1. OROKEN (CEFIXIME,) [Suspect]
  2. ASPEGIC 1000 [Suspect]
  3. BRONCHOKOD (CARBOCISTEINE,) [Suspect]
  4. SOLUPRED (PREDNISOLONE SODIUM SULFOBENZOATE,) [Suspect]

REACTIONS (2)
  - CLEFT LIP [None]
  - DRUG EXPOSURE DURING PREGNANCY [None]
